FAERS Safety Report 4806155-9 (Version None)
Quarter: 2005Q4

REPORT INFORMATION
  Report Type: 
  Country: None (occurrence: None)
  Receive Date: 20051019
  Receipt Date: 20051010
  Transmission Date: 20060501
  Serious: Yes (Hospitalization)
  Sender: FDA-Public Use
  Company Number: DEWYE041010OCT05

PATIENT
  Age: 15 Year
  Sex: Female

DRUGS (2)
  1. LEIOS (LEVONORGESTREL/ETHINYL ESTRADIOL, TABLET) [Suspect]
     Indication: DYSMENORRHOEA
     Dosage: 1 TABLET, ORAL
     Route: 048
     Dates: start: 20040601, end: 20050101
  2. LEIOS (LEVONORGESTREL/ETHINYL ESTRADIOL, TABLET) [Suspect]
     Indication: MENORRHAGIA
     Dosage: 1 TABLET, ORAL
     Route: 048
     Dates: start: 20040601, end: 20050101

REACTIONS (3)
  - BLOOD CULTURE POSITIVE [None]
  - STAPHYLOCOCCAL INFECTION [None]
  - VENOUS THROMBOSIS LIMB [None]
